FAERS Safety Report 9298544 (Version 1)
Quarter: 2013Q2

REPORT INFORMATION
  Report Type: Spontaneous
  Country: BR (occurrence: BR)
  Receive Date: 20130520
  Receipt Date: 20130524
  Transmission Date: 20140414
  Serious: Yes (Other)
  Sender: FDA-Public Use
  Company Number: BR-ASTRAZENECA-2013SE32981

PATIENT
  Age: 74 Year
  Sex: Female
  Weight: 69 kg

DRUGS (5)
  1. SPLENDIL [Suspect]
     Indication: HYPERTENSION
     Route: 048
  2. CRESTOR [Suspect]
     Indication: HYPERCHOLESTEROLAEMIA
     Route: 048
     Dates: start: 2011
  3. ATACAND HCT [Suspect]
     Indication: HYPERTENSION
     Dosage: 16./12.5 MG DAILY
     Route: 048
     Dates: end: 2012
  4. SOMALGIN [Concomitant]
     Indication: ANTICOAGULANT THERAPY
     Dosage: DAILY
  5. ABLOK [Concomitant]
     Indication: HYPERTENSION
     Dosage: DAILY
     Dates: start: 2012

REACTIONS (4)
  - Blood pressure increased [Recovered/Resolved]
  - Osteoarthritis [Recovering/Resolving]
  - Blood cholesterol increased [Recovering/Resolving]
  - Drug effect incomplete [Unknown]
